FAERS Safety Report 23974336 (Version 1)
Quarter: 2024Q2

REPORT INFORMATION
  Report Type: Spontaneous
  Country: FR (occurrence: FR)
  Receive Date: 20240614
  Receipt Date: 20240614
  Transmission Date: 20240715
  Serious: Yes (Hospitalization)
  Sender: FDA-Public Use
  Company Number: FR-AFSSAPS-TO2024000951

PATIENT
  Age: 75 Year
  Sex: Female

DRUGS (8)
  1. MIANSERIN HYDROCHLORIDE [Suspect]
     Active Substance: MIANSERIN HYDROCHLORIDE
     Indication: Depression
     Dosage: 90 MG, QD (LONG TERM)
     Route: 048
  2. ZOPICLONE [Suspect]
     Active Substance: ZOPICLONE
     Indication: Depression
     Dosage: 3.75 MG, QD (LONG TERM)
     Route: 048
  3. BISOPROLOL FUMARATE [Suspect]
     Active Substance: BISOPROLOL FUMARATE
     Indication: Hypertension
     Dosage: 90 MG, QD (LONG TERM)
     Route: 048
  4. AMITRIPTYLINE HYDROCHLORIDE [Suspect]
     Active Substance: AMITRIPTYLINE HYDROCHLORIDE
     Indication: Depression
     Dosage: 75 MG, QD (LONG TERM)
     Route: 048
     Dates: end: 20231122
  5. BROMAZEPAM [Suspect]
     Active Substance: BROMAZEPAM
     Indication: Depression
     Dosage: 9 MG, QD
     Route: 048
  6. AMLODIPINE [Suspect]
     Active Substance: AMLODIPINE BESYLATE
     Indication: Hypertension
     Dosage: 5 MG, QD (LONG TERM)
     Route: 048
  7. IRBESARTAN [Suspect]
     Active Substance: IRBESARTAN
     Indication: Hypertension
     Dosage: 75 MG, QD
     Route: 048
     Dates: end: 20231122
  8. OXYBUTYNIN [Suspect]
     Active Substance: OXYBUTYNIN\OXYBUTYNIN CHLORIDE
     Indication: Product used for unknown indication
     Dosage: 5 MG, QD (LONG TERM)
     Route: 048
     Dates: end: 20231122

REACTIONS (2)
  - Fall [Recovered/Resolved]
  - Hypotension [Recovered/Resolved]

NARRATIVE: CASE EVENT DATE: 20231123
